FAERS Safety Report 22219841 (Version 1)
Quarter: 2023Q2

REPORT INFORMATION
  Report Type: Spontaneous
  Country: US (occurrence: None)
  Receive Date: 20230414
  Receipt Date: 20230414
  Transmission Date: 20230722
  Serious: No
  Sender: FDA-Public Use
  Company Number: None

PATIENT
  Age: 32 Year
  Sex: Male

DRUGS (1)
  1. PAXLOVID [Suspect]
     Active Substance: NIRMATRELVIR\RITONAVIR
     Dosage: OTHER QUANTITY : 3 TOT;?FREQUENCY : TWICE A DAY;?
     Route: 048
     Dates: start: 20230404, end: 20230405

REACTIONS (4)
  - Dizziness [None]
  - Vision blurred [None]
  - Vertigo [None]
  - Therapy interrupted [None]

NARRATIVE: CASE EVENT DATE: 20230404
